FAERS Safety Report 5635093-7 (Version None)
Quarter: 2008Q1

REPORT INFORMATION
  Report Type: 
  Country: None (occurrence: None)
  Receive Date: 20080222
  Receipt Date: 20080212
  Transmission Date: 20080703
  Serious: Yes (Hospitalization)
  Sender: FDA-Public Use
  Company Number: US-PFIZER INC-2005127914

PATIENT
  Sex: Female
  Weight: 114 kg

DRUGS (7)
  1. SUTENT [Suspect]
     Indication: RENAL CELL CARCINOMA
     Route: 048
  2. REGLAN [Concomitant]
     Route: 048
  3. DARVOCET-N 100 [Concomitant]
     Dosage: TEXT:100MG-650MG-FREQ:AS NEEDED
     Route: 048
  4. PEPCID [Concomitant]
     Route: 048
  5. PAXIL [Concomitant]
     Route: 048
  6. ESTRATEST H.S. [Concomitant]
     Dosage: TEXT:0.625MG-1.25MG
     Route: 048
  7. VITAMIN E [Concomitant]
     Dosage: TEXT:400 UNIT SOFTGEL
     Route: 048

REACTIONS (3)
  - BACK PAIN [None]
  - CHEST PAIN [None]
  - MUSCULAR WEAKNESS [None]
